FAERS Safety Report 7128439-4 (Version None)
Quarter: 2010Q4

REPORT INFORMATION
  Report Type: 
  Country: None (occurrence: None)
  Receive Date: 20101130
  Receipt Date: 20101118
  Transmission Date: 20110411
  Serious: No
  Sender: FDA-Public Use
  Company Number: US-JNJFOC-20101107186

PATIENT
  Sex: Female
  Weight: 116.12 kg

DRUGS (4)
  1. FENTANYL-100 [Suspect]
     Indication: BACK PAIN
     Dosage: 100 UG/HR+75 UG/HR=175 UG/HR PATCH, NDC: 0781-7243-55 FOR 75 UG/HR AND 0781-7244-55 FOR 100 UG/HR
     Route: 062
  2. CYMBALTA [Concomitant]
     Indication: DEPRESSION
     Route: 065
  3. CYMBALTA [Concomitant]
     Indication: ANXIETY
     Route: 065
  4. STRATTERA [Concomitant]
     Indication: ATTENTION DEFICIT/HYPERACTIVITY DISORDER
     Route: 065

REACTIONS (4)
  - INCORRECT DOSE ADMINISTERED [None]
  - INCORRECT DRUG ADMINISTRATION DURATION [None]
  - PRODUCT CONTAMINATION [None]
  - RASH [None]
